FAERS Safety Report 8126454 (Version 7)
Quarter: 2013Q4

REPORT INFORMATION
  Report Type: Report from Study
  Country: TW (occurrence: TW)
  Receive Date: 20110908
  Receipt Date: 20131010
  Transmission Date: 20140711
  Serious: Yes (Death, Life-Threatening, Hospitalization, Other)
  Sender: FDA-Public Use
  Company Number: TW-CELGENEUS-153-21880-11070232

PATIENT
  Age: 75 Year
  Sex: Male
  Weight: 50 kg

DRUGS (18)
  1. REVLIMID [Suspect]
     Indication: PLASMA CELL MYELOMA
     Dosage: 10 MILLIGRAM
     Route: 048
     Dates: start: 20110603, end: 20110621
  2. REVLIMID [Suspect]
     Dosage: 10 MILLIGRAM
     Route: 048
     Dates: start: 20110708, end: 20110713
  3. DEXAMETHASONE [Concomitant]
     Indication: PLASMA CELL MYELOMA
     Dosage: 16 MILLIGRAM
     Route: 065
     Dates: start: 20110603
  4. DEXAMETHASONE [Concomitant]
     Dosage: 16 MILLIGRAM
     Route: 065
     Dates: start: 20110706, end: 20110712
  5. PREDNISOLONE [Concomitant]
     Indication: PLASMA CELL MYELOMA
     Dosage: 5 MILLIGRAM
     Route: 065
     Dates: start: 20110311
  6. PREDNISOLONE [Concomitant]
     Dosage: 5 MILLIGRAM
     Route: 065
     Dates: start: 20110701, end: 20110706
  7. ALFUZOSIN [Concomitant]
     Indication: BENIGN PROSTATIC HYPERPLASIA
     Dosage: 10 MILLIGRAM
     Route: 065
     Dates: start: 20110311, end: 20110617
  8. FLURBIPROFEN [Concomitant]
     Indication: ANALGESIC THERAPY
     Route: 065
     Dates: start: 20071218, end: 20110725
  9. FLURBIPROFEN [Concomitant]
     Indication: OSTEOPOROSIS
     Route: 065
     Dates: start: 20081125
  10. ISOSORBIDE DINITRATE [Concomitant]
     Indication: ANGINA PECTORIS
     Dosage: 5 MILLIGRAM
     Route: 065
     Dates: start: 20070215, end: 20110630
  11. ISOSORBIDE DINITRATE [Concomitant]
     Indication: MYOCARDIAL ISCHAEMIA
     Route: 065
     Dates: start: 20080708, end: 20110630
  12. ISOSORBIDE DINITRATE [Concomitant]
     Indication: OSTEOPOROSIS
     Route: 065
  13. MAGNESIUM OXIDE [Concomitant]
     Indication: CONSTIPATION
     Dosage: 500 MILLIGRAM
     Route: 065
     Dates: start: 20110516, end: 20110529
  14. ULTRACET [Concomitant]
     Indication: BONE PAIN
     Dosage: 2 DOSAGE FORMS
     Route: 065
     Dates: start: 20070417, end: 20110727
  15. ULTRACET [Concomitant]
     Indication: OSTEOPOROSIS
     Route: 065
     Dates: start: 20110329
  16. HALDOL [Concomitant]
     Indication: CONFUSIONAL STATE
     Route: 065
     Dates: start: 20110720
  17. ISOPRIDE [Concomitant]
     Indication: DYSPEPSIA
     Dosage: 15 MILLIGRAM
     Route: 065
     Dates: start: 20110512, end: 20110514
  18. LACTULOSE [Concomitant]
     Indication: CONSTIPATION
     Dosage: 60 MILLILITER
     Route: 065
     Dates: start: 20110512, end: 20110514

REACTIONS (6)
  - Cachexia [Recovered/Resolved]
  - Malnutrition [Recovered/Resolved]
  - Septic shock [Fatal]
  - Pneumonia [Not Recovered/Not Resolved]
  - Colitis ischaemic [Not Recovered/Not Resolved]
  - Pneumonia [Recovered/Resolved]
